FAERS Safety Report 7112662-9 (Version None)
Quarter: 2010Q4

REPORT INFORMATION
  Report Type: 
  Country: None (occurrence: None)
  Receive Date: 20101119
  Receipt Date: 20101115
  Transmission Date: 20110411
  Serious: Yes (Life-Threatening, Hospitalization)
  Sender: FDA-Public Use
  Company Number: JP-ASTRAZENECA-2010SE51230

PATIENT
  Age: 901 Month
  Sex: Female
  Weight: 45 kg

DRUGS (7)
  1. IRESSA [Suspect]
     Indication: LUNG NEOPLASM MALIGNANT
     Route: 048
     Dates: start: 20091217, end: 20100710
  2. IRESSA [Suspect]
     Route: 048
     Dates: start: 20100812
  3. PREDNISOLONE [Concomitant]
     Indication: COLITIS ULCERATIVE
     Route: 048
     Dates: end: 20100710
  4. SALAZOPYRIN [Concomitant]
     Indication: COLITIS ULCERATIVE
     Route: 048
     Dates: end: 20100710
  5. MARZULENE-S [Concomitant]
     Indication: GASTRITIS
     Dosage: TWO TIMES A DAY
     Route: 048
     Dates: end: 20100710
  6. LAC-B [Concomitant]
     Indication: CONSTIPATION
     Dosage: TWO TIMES A DAY
     Route: 048
     Dates: end: 20100710
  7. MYSLEE [Concomitant]
     Indication: INSOMNIA
     Route: 048
     Dates: end: 20100710

REACTIONS (2)
  - COLITIS ULCERATIVE [None]
  - LARGE INTESTINE PERFORATION [None]
